FAERS Safety Report 18590852 (Version 1)
Quarter: 2020Q4

REPORT INFORMATION
  Report Type: Spontaneous
  Country: US (occurrence: US)
  Receive Date: 20201208
  Receipt Date: 20201208
  Transmission Date: 20210114
  Serious: No
  Sender: FDA-Public Use
  Company Number: US-PFIZER INC-2020476806

PATIENT
  Age: 69 Year
  Sex: Female
  Weight: 90.72 kg

DRUGS (2)
  1. GABAPENTIN. [Suspect]
     Active Substance: GABAPENTIN
     Dosage: 600 MG, 3X/DAY
  2. DULOXETINE. [Concomitant]
     Active Substance: DULOXETINE
     Dosage: 60 MG, 1X/DAY

REACTIONS (13)
  - Dyskinesia [Not Recovered/Not Resolved]
  - Intervertebral disc protrusion [Unknown]
  - Back pain [Not Recovered/Not Resolved]
  - Cardiac disorder [Unknown]
  - Camptocormia [Unknown]
  - Depression [Unknown]
  - Tremor [Not Recovered/Not Resolved]
  - Dysstasia [Unknown]
  - Arthritis [Unknown]
  - Spinal osteoarthritis [Unknown]
  - Sciatica [Unknown]
  - Anxiety [Unknown]
  - Pain [Not Recovered/Not Resolved]
